FAERS Safety Report 24986719 (Version 2)
Quarter: 2025Q2

REPORT INFORMATION
  Report Type: Spontaneous
  Country: JP (occurrence: JP)
  Receive Date: 20250219
  Receipt Date: 20250403
  Transmission Date: 20250716
  Serious: Yes (Death, Hospitalization)
  Sender: JOHNSON AND JOHNSON
  Company Number: JP-ACTELION-A-CH2019-189561

PATIENT
  Age: 58 Year
  Sex: Male

DRUGS (6)
  1. UPTRAVI [Suspect]
     Active Substance: SELEXIPAG
     Indication: Pulmonary arterial hypertension
     Dosage: 0.2 MG, BID
     Route: 048
     Dates: start: 201806
  2. OPSUMIT [Suspect]
     Active Substance: MACITENTAN
     Indication: Pulmonary arterial hypertension
     Dosage: 10 MG, QD
     Route: 048
     Dates: start: 201608, end: 20190307
  3. FLOLAN [Concomitant]
     Active Substance: EPOPROSTENOL SODIUM
     Route: 041
     Dates: start: 20130125
  4. FLOLAN [Concomitant]
     Active Substance: EPOPROSTENOL SODIUM
     Dosage: 60.8 NG/KG, PER MIN
     Route: 041
     Dates: start: 201307
  5. RIOCIGUAT [Concomitant]
     Active Substance: RIOCIGUAT
     Dates: start: 201508
  6. UNSPECIFIED INGREDIENT [Concomitant]
     Active Substance: UNSPECIFIED INGREDIENT
     Indication: Loss of consciousness

REACTIONS (7)
  - Pulmonary arterial hypertension [Fatal]
  - Right ventricular failure [Fatal]
  - Right ventricular failure [Fatal]
  - Dyspnoea exertional [Unknown]
  - Concomitant disease aggravated [Unknown]
  - Loss of consciousness [Unknown]
  - Dyspnoea [Unknown]

NARRATIVE: CASE EVENT DATE: 20180601
